FAERS Safety Report 8084172-6 (Version None)
Quarter: 2012Q1

REPORT INFORMATION
  Report Type: 
  Country: None (occurrence: None)
  Receive Date: 20120128
  Receipt Date: 20110119
  Transmission Date: 20120608
  Serious: No
  Sender: FDA-Public Use
  Company Number: US-ABBOTT-11P-163-0699419-00

PATIENT
  Sex: Female
  Weight: 54.48 kg

DRUGS (3)
  1. HUMIRA [Suspect]
     Indication: RHEUMATOID ARTHRITIS
     Route: 058
     Dates: start: 20110104
  2. ALCOHOL PREP PAD [Suspect]
     Indication: INFECTION PROPHYLAXIS
     Route: 061
     Dates: start: 20110104, end: 20110114
  3. HUMIRA [Suspect]
     Route: 058
     Dates: start: 20100601, end: 20101201

REACTIONS (6)
  - INJECTION SITE PRURITUS [None]
  - INJECTION SITE SWELLING [None]
  - INJECTION SITE WARMTH [None]
  - INJECTION SITE ERYTHEMA [None]
  - ARTHRALGIA [None]
  - INJECTION SITE PAIN [None]
